FAERS Safety Report 7810894-5 (Version None)
Quarter: 2011Q4

REPORT INFORMATION
  Report Type: 
  Country: None (occurrence: None)
  Receive Date: 20111013
  Receipt Date: 20111004
  Transmission Date: 20120403
  Serious: Yes (Other)
  Sender: FDA-Public Use
  Company Number: FR-JNJFOC-20111003394

PATIENT

DRUGS (17)
  1. CYCLOPHOSPHAMIDE [Suspect]
     Indication: ACUTE LYMPHOCYTIC LEUKAEMIA
     Dosage: DAY 1, 60 MIN
     Route: 065
  2. MERCAPTOPURINE [Suspect]
     Indication: ACUTE LYMPHOCYTIC LEUKAEMIA
     Route: 065
  3. DOXORUBICIN HCL [Suspect]
     Dosage: INFUSED OVER 1 HOUR ON DAY 1
     Route: 042
  4. DEXAMETHASONE [Suspect]
     Indication: ACUTE LYMPHOCYTIC LEUKAEMIA
     Dosage: ON DAYS 1-4, 9-12 AND 17-20
     Route: 048
  5. PREDNISONE [Concomitant]
     Route: 048
  6. VINCRISTINE [Suspect]
     Indication: ACUTE LYMPHOCYTIC LEUKAEMIA
     Dosage: ON DAY 1- 4
     Route: 042
  7. CYTARABINE [Suspect]
     Indication: ACUTE LYMPHOCYTIC LEUKAEMIA
     Route: 065
  8. VINCRISTINE [Suspect]
     Dosage: INFUSED  OVER 5 MIN ON DAY 1
     Route: 042
  9. THIOGUANINE [Suspect]
     Indication: ACUTE LYMPHOCYTIC LEUKAEMIA
     Route: 065
  10. DEXAMETHASONE [Suspect]
     Dosage: ON DAYS 1-4, 9-12 AND 17-20
     Route: 048
  11. CYCLOPHOSPHAMIDE [Suspect]
     Dosage: DAY 1, 60 MIN
     Route: 065
  12. HYDROCORTISONE [Concomitant]
     Route: 065
  13. VINCRISTINE [Suspect]
     Dosage: INFUSED  OVER 5 MIN ON DAY 1
     Route: 042
  14. DOXORUBICIN HCL [Suspect]
     Indication: ACUTE LYMPHOCYTIC LEUKAEMIA
     Dosage: INFUSED OVER 1 HOUR ON DAY 1 - 4
     Route: 042
  15. DOXORUBICIN HCL [Suspect]
     Dosage: INFUSED OVER 1 HOUR ON DAY 1 - 4
     Route: 042
  16. METHOTREXATE [Suspect]
     Indication: ACUTE LYMPHOCYTIC LEUKAEMIA
     Route: 065
  17. METHOTREXATE [Concomitant]
     Route: 039

REACTIONS (1)
  - PNEUMOCYSTIS JIROVECI INFECTION [None]
